FAERS Safety Report 16716644 (Version 2)
Quarter: 2019Q4

REPORT INFORMATION
  Report Type: Spontaneous
  Country: DE (occurrence: DE)
  Receive Date: 20190819
  Receipt Date: 20191202
  Transmission Date: 20200122
  Serious: Yes (Other)
  Sender: FDA-Public Use
  Company Number: PHHY2019DE169321

PATIENT
  Age: 60 Year
  Sex: Female

DRUGS (34)
  1. POLYHEXANIDE [Suspect]
     Active Substance: POLIHEXANIDE
     Indication: SERRATIA INFECTION
  2. CYCLOPENTOLATE. [Suspect]
     Active Substance: CYCLOPENTOLATE
     Indication: ULCERATIVE KERATITIS
     Dosage: UNK
     Route: 061
  3. OFLOXACIN. [Suspect]
     Active Substance: OFLOXACIN
     Indication: PSEUDOMONAS INFECTION
     Dosage: UNK
     Route: 061
  4. PROPAMIDINE ISETIONATE [Suspect]
     Active Substance: PROPAMIDINE ISETHIONATE
     Indication: PSEUDOMONAS INFECTION
  5. CEFTRIAXONE. [Suspect]
     Active Substance: CEFTRIAXONE
     Indication: PSEUDOMONAS INFECTION
  6. ACETAZOLAMIDE. [Suspect]
     Active Substance: ACETAZOLAMIDE
     Indication: PSEUDOMONAS INFECTION
     Dosage: UNK
     Route: 061
  7. ACETAZOLAMIDE. [Suspect]
     Active Substance: ACETAZOLAMIDE
     Indication: SERRATIA INFECTION
  8. ACETAZOLAMIDE. [Suspect]
     Active Substance: ACETAZOLAMIDE
     Indication: ULCERATIVE KERATITIS
  9. PROPAMIDINE ISETIONATE [Suspect]
     Active Substance: PROPAMIDINE ISETHIONATE
     Indication: SERRATIA INFECTION
  10. CLINDAMYCIN. [Suspect]
     Active Substance: CLINDAMYCIN
     Indication: SERRATIA INFECTION
  11. CLINDAMYCIN. [Suspect]
     Active Substance: CLINDAMYCIN
     Indication: ULCERATIVE KERATITIS
  12. GRAMICIDIN,NEOMYCIN SULFATE,POLYMYCIN B SULPHATE [Suspect]
     Active Substance: GRAMICIDIN\NEOMYCIN SULFATE\POLYMYXIN B SULFATE
     Indication: SERRATIA INFECTION
     Dosage: UNK
     Route: 061
  13. ACETAZOLAMIDE. [Suspect]
     Active Substance: ACETAZOLAMIDE
     Indication: ULCERATIVE KERATITIS
     Dosage: UNK
     Route: 048
  14. ACETAZOLAMIDE. [Suspect]
     Active Substance: ACETAZOLAMIDE
     Indication: SERRATIA INFECTION
  15. POLYHEXANIDE [Suspect]
     Active Substance: POLIHEXANIDE
     Indication: SERRATIA INFECTION
  16. OFLOXACIN. [Suspect]
     Active Substance: OFLOXACIN
     Indication: ULCERATIVE KERATITIS
     Dosage: UNK
     Route: 065
  17. CEFTRIAXONE. [Suspect]
     Active Substance: CEFTRIAXONE
     Indication: SERRATIA INFECTION
  18. CEFTRIAXONE. [Suspect]
     Active Substance: CEFTRIAXONE
     Indication: SERRATIA INFECTION
  19. GRAMICIDIN,NEOMYCIN SULFATE,POLYMYCIN B SULPHATE [Suspect]
     Active Substance: GRAMICIDIN\NEOMYCIN SULFATE\POLYMYXIN B SULFATE
     Indication: PSEUDOMONAS INFECTION
  20. POLYHEXANIDE [Suspect]
     Active Substance: POLIHEXANIDE
     Indication: ULCERATIVE KERATITIS
  21. CYCLOPENTOLATE. [Suspect]
     Active Substance: CYCLOPENTOLATE
     Indication: SERRATIA INFECTION
  22. OFLOXACIN. [Suspect]
     Active Substance: OFLOXACIN
     Indication: SERRATIA INFECTION
  23. CLINDAMYCIN. [Suspect]
     Active Substance: CLINDAMYCIN
     Indication: PSEUDOMONAS INFECTION
  24. POLYHEXANIDE [Suspect]
     Active Substance: POLIHEXANIDE
     Indication: ULCERATIVE KERATITIS
     Dosage: UNK
     Route: 061
  25. OFLOXACIN. [Suspect]
     Active Substance: OFLOXACIN
     Indication: ULCERATIVE KERATITIS
  26. CLINDAMYCIN. [Suspect]
     Active Substance: CLINDAMYCIN
     Indication: SERRATIA INFECTION
  27. POLYHEXANIDE [Suspect]
     Active Substance: POLIHEXANIDE
     Indication: PSEUDOMONAS INFECTION
  28. CYCLOPENTOLATE. [Suspect]
     Active Substance: CYCLOPENTOLATE
     Indication: PSEUDOMONAS INFECTION
  29. OFLOXACIN. [Suspect]
     Active Substance: OFLOXACIN
     Indication: SERRATIA INFECTION
  30. PROPAMIDINE ISETIONATE [Suspect]
     Active Substance: PROPAMIDINE ISETHIONATE
     Indication: ULCERATIVE KERATITIS
     Dosage: UNK
     Route: 061
  31. CEFTRIAXONE. [Suspect]
     Active Substance: CEFTRIAXONE
     Indication: ULCERATIVE KERATITIS
     Dosage: UNK
     Route: 042
  32. CEFTRIAXONE. [Suspect]
     Active Substance: CEFTRIAXONE
     Indication: ULCERATIVE KERATITIS
  33. CLINDAMYCIN. [Suspect]
     Active Substance: CLINDAMYCIN
     Indication: ULCERATIVE KERATITIS
     Dosage: UNK
     Route: 042
  34. GRAMICIDIN,NEOMYCIN SULFATE,POLYMYCIN B SULPHATE [Suspect]
     Active Substance: GRAMICIDIN\NEOMYCIN SULFATE\POLYMYXIN B SULFATE
     Indication: ULCERATIVE KERATITIS

REACTIONS (3)
  - Drug resistance [Unknown]
  - Drug ineffective [Unknown]
  - Product use in unapproved indication [Unknown]
